FAERS Safety Report 7212991-4 (Version None)
Quarter: 2011Q1

REPORT INFORMATION
  Report Type: 
  Country: None (occurrence: None)
  Receive Date: 20110106
  Receipt Date: 20110104
  Transmission Date: 20110831
  Serious: Yes (Other)
  Sender: FDA-Public Use
  Company Number: A0902841A

PATIENT
  Age: 29 Year
  Sex: Female

DRUGS (3)
  1. IMMUNE GLOBULIN INTRAVENOUS (HUMAN) [Concomitant]
  2. PROMACTA [Suspect]
     Indication: IDIOPATHIC THROMBOCYTOPENIC PURPURA
     Dosage: 50MG PER DAY
     Route: 048
     Dates: start: 20101001, end: 20101118
  3. STEROID (UNSPECIFIED) [Concomitant]

REACTIONS (4)
  - PLATELET COUNT ABNORMAL [None]
  - DRUG INEFFECTIVE [None]
  - PLATELET COUNT DECREASED [None]
  - PLATELET COUNT INCREASED [None]
